FAERS Safety Report 19432327 (Version 2)
Quarter: 2021Q3

REPORT INFORMATION
  Report Type: Spontaneous
  Country: US (occurrence: US)
  Receive Date: 20210617
  Receipt Date: 20210917
  Transmission Date: 20211014
  Serious: No
  Sender: FDA-Public Use
  Company Number: US-CATALYST PHARMACEUTICALS, INC-2021CAT00226

PATIENT
  Sex: Female
  Weight: 45.81 kg

DRUGS (19)
  1. IRON [Concomitant]
     Active Substance: IRON
     Dosage: 25 MG, 1X/DAY
  2. VITAMIN C [Concomitant]
     Active Substance: ASCORBIC ACID
  3. FIRDAPSE [Suspect]
     Active Substance: AMIFAMPRIDINE PHOSPHATE
     Indication: MYASTHENIC SYNDROME
     Dosage: UNK
     Route: 048
     Dates: start: 20181221
  4. FIRDAPSE [Suspect]
     Active Substance: AMIFAMPRIDINE PHOSPHATE
     Dosage: 20 MG (2 TABLETS), 1X/DAY IN THE EVENING
     Route: 048
     Dates: end: 202103
  5. VITAMIN D [Concomitant]
     Active Substance: VITAMIN D NOS
  6. DHEA [Concomitant]
     Active Substance: PRASTERONE
     Dosage: 18/60 MG, 1X/DAY
  7. FIRDAPSE [Suspect]
     Active Substance: AMIFAMPRIDINE PHOSPHATE
     Dosage: 30 MG (3 TABLETS), 2X/DAY IN THE MORNING AND AT NOON
     Route: 048
     Dates: start: 20190225, end: 202103
  8. FIRDAPSE [Suspect]
     Active Substance: AMIFAMPRIDINE PHOSPHATE
     Dosage: 30 MG (3 TABLETS), 2X/DAY IN THE MORNING AND AT NOON
     Route: 048
     Dates: start: 2021, end: 202107
  9. FIRDAPSE [Suspect]
     Active Substance: AMIFAMPRIDINE PHOSPHATE
     Dosage: 30 MG (3 TABLETS), 2X/DAY IN THE MORNING AND AT NOON
     Route: 048
     Dates: start: 2021
  10. FIRDAPSE [Suspect]
     Active Substance: AMIFAMPRIDINE PHOSPHATE
     Dosage: 20 MG (2 TABLETS), 1X/DAY IN THE EVENING
     Route: 048
     Dates: start: 2021
  11. AREDS 2 [Concomitant]
     Active Substance: MINERALS\VITAMINS
     Dosage: 1 TABLET, 2X/DAY
  12. AVASTIN [Concomitant]
     Active Substance: BEVACIZUMAB
     Dosage: 1.25 UNK, EVERY 9 WEEKS
     Route: 042
  13. VITAMIN B [Concomitant]
     Active Substance: VITAMIN B
  14. POTASSIUM GLUCONATE [Concomitant]
     Active Substance: POTASSIUM GLUCONATE
     Dosage: 595 MG, 1X/DAY
  15. FIRDAPSE [Suspect]
     Active Substance: AMIFAMPRIDINE PHOSPHATE
     Dosage: 20 MG (2 TABLETS), 1X/DAY IN THE EVENING
     Route: 048
     Dates: start: 2021, end: 202107
  16. ARMOUR THYROID [Concomitant]
     Active Substance: THYROID, PORCINE
     Dosage: 60 MG, 1X/DAY
  17. CEPHALEXIN. [Concomitant]
     Active Substance: CEPHALEXIN
     Dosage: 250 MG, 1X/DAY
  18. BI?EST TESTOSTERONE [Concomitant]
     Dosage: 0.125/0.5 MG, 2X/DAY
  19. EYLEA [Concomitant]
     Active Substance: AFLIBERCEPT
     Dosage: 2 MG / 0.05 ML EVERY 9 WEEKS

REACTIONS (2)
  - Product dose omission issue [Recovered/Resolved]
  - COVID-19 [Recovered/Resolved]

NARRATIVE: CASE EVENT DATE: 2021
